FAERS Safety Report 26056011 (Version 1)
Quarter: 2025Q4

REPORT INFORMATION
  Report Type: Spontaneous
  Country: US (occurrence: US)
  Receive Date: 20251118
  Receipt Date: 20251118
  Transmission Date: 20260118
  Serious: No
  Sender: ASTELLAS
  Company Number: US-ASTELLAS-2025-AER-062223

PATIENT
  Age: 84 Year
  Sex: Female

DRUGS (1)
  1. MYRBETRIQ [Suspect]
     Active Substance: MIRABEGRON
     Indication: Product used for unknown indication
     Dosage: MYRBETRIQ 25MG ER
     Route: 065
     Dates: start: 202510, end: 20251106

REACTIONS (3)
  - Muscle spasms [Unknown]
  - Insomnia [Unknown]
  - Emotional distress [Unknown]

NARRATIVE: CASE EVENT DATE: 20251001
